FAERS Safety Report 8418347-0 (Version None)
Quarter: 2012Q2

REPORT INFORMATION
  Report Type: 
  Country: None (occurrence: None)
  Receive Date: 20120607
  Receipt Date: 20120525
  Transmission Date: 20120825
  Serious: No
  Sender: FDA-Public Use
  Company Number: US-B.I. PHARMACEUTICALS,INC./RIDGEFIELD-2012-BP-12437BP

PATIENT
  Sex: Female

DRUGS (6)
  1. SPIRONOLACTONE [Concomitant]
     Indication: HYPERTENSION
  2. VITAMIN D [Concomitant]
     Indication: SUPPLEMENTATION THERAPY
  3. AVAPRO [Concomitant]
     Indication: PROPHYLAXIS
  4. CATAPRES-TTS-1 [Suspect]
     Indication: HYPERTENSION
     Dosage: 0.2 MG
     Route: 061
     Dates: start: 20110101, end: 20120301
  5. CLONIDINE [Suspect]
     Indication: HYPERTENSION
     Dosage: 0.2 MG
     Route: 061
     Dates: start: 20110101, end: 20110101
  6. AGGRENOX [Concomitant]
     Indication: CEREBROVASCULAR ACCIDENT PROPHYLAXIS
     Dates: start: 20090101

REACTIONS (3)
  - BLOOD PRESSURE ABNORMAL [None]
  - RASH [None]
  - HYPERTENSION [None]
